FAERS Safety Report 11376828 (Version 1)
Quarter: 2015Q3

REPORT INFORMATION
  Report Type: Spontaneous
  Country: DK (occurrence: FR)
  Receive Date: 20150813
  Receipt Date: 20150813
  Transmission Date: 20151125
  Serious: Yes (Hospitalization)
  Sender: FDA-Public Use
  Company Number: FR-FRI-1000078942

PATIENT
  Sex: Female

DRUGS (2)
  1. ESCITALOPRAM [Suspect]
     Active Substance: ESCITALOPRAM OXALATE
     Indication: PRODUCT USED FOR UNKNOWN INDICATION
     Route: 048
     Dates: start: 2013
  2. DAILY [Concomitant]
     Active Substance: ETHINYL ESTRADIOL\LEVONORGESTREL
     Indication: PRODUCT USED FOR UNKNOWN INDICATION
     Route: 065

REACTIONS (3)
  - Hypoglycaemia [Unknown]
  - Loss of consciousness [Unknown]
  - Complex partial seizures [Unknown]

NARRATIVE: CASE EVENT DATE: 2013
